FAERS Safety Report 7362475-8 (Version None)
Quarter: 2011Q1

REPORT INFORMATION
  Report Type: 
  Country: None (occurrence: None)
  Receive Date: 20110318
  Receipt Date: 20110310
  Transmission Date: 20110831
  Serious: Yes (Hospitalization)
  Sender: FDA-Public Use
  Company Number: GB-GENENTECH-315118

PATIENT
  Sex: Female
  Weight: 50 kg

DRUGS (4)
  1. RITUXIMAB [Suspect]
     Indication: LYMPHOMA
     Dosage: UNK
     Route: 065
  2. MORPHINE [Concomitant]
     Dosage: UNK
  3. MIDAZOLAM [Concomitant]
     Dosage: UNK
  4. SILDENAFIL [Suspect]
     Indication: PULMONARY FIBROSIS
     Dosage: 10 MG, UNK
     Route: 042
     Dates: start: 20110211, end: 20110214

REACTIONS (2)
  - PULMONARY FIBROSIS [None]
  - HYPOTENSION [None]
